FAERS Safety Report 10993452 (Version 1)
Quarter: 2015Q2

REPORT INFORMATION
  Report Type: Spontaneous
  Country: HR (occurrence: HR)
  Receive Date: 20150407
  Receipt Date: 20150407
  Transmission Date: 20150821
  Serious: Yes (Death)
  Sender: FDA-Public Use
  Company Number: HR-ROCHE-1559253

PATIENT

DRUGS (5)
  1. NEORAL [Suspect]
     Active Substance: CYCLOSPORINE
     Indication: IMMUNOSUPPRESSION
     Dosage: DAILY DOSE
     Route: 065
     Dates: start: 20140209, end: 20140418
  2. DECORTIN [Concomitant]
     Active Substance: PREDNISONE
     Dosage: DAILY DOSE
     Route: 065
     Dates: start: 20140209
  3. SINERSUL [Concomitant]
     Active Substance: SULFAMETHOXAZOLE\TRIMETHOPRIM
     Indication: PNEUMOCYSTIS JIROVECII INFECTION
     Dosage: DAILY DOSE
     Route: 048
     Dates: start: 2014
  4. VALCYTE [Concomitant]
     Active Substance: VALGANCICLOVIR HYDROCHLORIDE
     Indication: CYTOMEGALOVIRUS INFECTION
     Dosage: DAILY DOSE
     Route: 048
     Dates: start: 2014
  5. CELLCEPT [Suspect]
     Active Substance: MYCOPHENOLATE MOFETIL\MYCOPHENOLATE MOFETIL HYDROCHLORIDE
     Indication: IMMUNOSUPPRESSION
     Dosage: DAILY DOSE
     Route: 065
     Dates: start: 20140209, end: 20140418

REACTIONS (4)
  - Hepatic artery thrombosis [Fatal]
  - Multi-organ failure [Fatal]
  - Liver abscess [Fatal]
  - Sepsis [Fatal]

NARRATIVE: CASE EVENT DATE: 20140319
